FAERS Safety Report 5898778-3 (Version None)
Quarter: 2008Q3

REPORT INFORMATION
  Report Type: 
  Country: None (occurrence: None)
  Receive Date: 20080925
  Receipt Date: 20080619
  Transmission Date: 20090109
  Serious: No
  Sender: FDA-Public Use
  Company Number: A0732449A

PATIENT
  Age: 52 Year
  Sex: Female

DRUGS (10)
  1. WELLBUTRIN XL [Suspect]
     Indication: DEPRESSION
     Dosage: 150MG PER DAY
     Route: 048
     Dates: start: 20060101
  2. CYMBALTA [Concomitant]
  3. REGLAN [Concomitant]
  4. VALIUM [Concomitant]
  5. FAMOTIDINE [Concomitant]
  6. GLUCOSAMINE [Concomitant]
  7. VITAMIN B-12 [Concomitant]
  8. KLONOPIN [Concomitant]
  9. NORTRIPTYLINE HCL [Concomitant]
  10. ZOFRAN [Concomitant]

REACTIONS (2)
  - ADVERSE EVENT [None]
  - DIZZINESS [None]
